FAERS Safety Report 22116665 (Version 2)
Quarter: 2023Q1

REPORT INFORMATION
  Report Type: Report from Study
  Country: AU (occurrence: AU)
  Receive Date: 20230320
  Receipt Date: 20230323
  Transmission Date: 20230418
  Serious: Yes (Hospitalization)
  Sender: FDA-Public Use
  Company Number: AU-PFIZER INC-PV202300049667

PATIENT
  Age: 38 Year
  Sex: Male
  Weight: 85.8 kg

DRUGS (6)
  1. PALBOCICLIB [Suspect]
     Active Substance: PALBOCICLIB
     Indication: Renal cell carcinoma
     Dosage: 75 MILLIGRAM, QD (ONCE DAILY (QD) FOR 21 CONSECUTIVE DAYS, 7 DAYS OFF)
     Route: 048
     Dates: start: 20220914, end: 20230201
  2. BELZUTIFAN [Suspect]
     Active Substance: BELZUTIFAN
     Indication: Renal cell carcinoma
     Dosage: 120 MG, CYCLIC (ONCE DAILY (QD) FOR 21 CONSECUTIVE DAYS, 7 DAYS OFF )
     Route: 048
     Dates: start: 20220914, end: 20230201
  3. HYSONE [HYDROCORTISONE] [Concomitant]
     Dosage: 4 MG
     Dates: start: 202112
  4. ACETAMINOPHEN [Concomitant]
     Active Substance: ACETAMINOPHEN
     Dosage: 500 MG
     Dates: start: 20221101
  5. OXYCODONE HYDROCHLORIDE [Concomitant]
     Active Substance: OXYCODONE HYDROCHLORIDE
     Dosage: 5 MG
     Dates: start: 20221101
  6. NALOXONE HYDROCHLORIDE\OXYCODONE HYDROCHLORIDE [Concomitant]
     Active Substance: NALOXONE HYDROCHLORIDE\OXYCODONE HYDROCHLORIDE
     Dosage: UNK
     Dates: start: 20221101

REACTIONS (1)
  - Cancer pain [Not Recovered/Not Resolved]

NARRATIVE: CASE EVENT DATE: 20230310
